FAERS Safety Report 13231003 (Version 1)
Quarter: 2017Q1

REPORT INFORMATION
  Report Type: Spontaneous
  Country: PL (occurrence: PL)
  Receive Date: 20170214
  Receipt Date: 20170214
  Transmission Date: 20170428
  Serious: Yes (Other)
  Sender: FDA-Public Use
  Company Number: PL-ASTELLAS-2017US005397

PATIENT
  Age: 61 Year
  Sex: Male

DRUGS (1)
  1. SOLIFENACIN [Suspect]
     Active Substance: SOLIFENACIN
     Indication: MICTURITION URGENCY
     Dosage: UNK UNK, UNKNOWN FREQ.
     Route: 065

REACTIONS (4)
  - Bladder cancer [Recovered/Resolved]
  - Transitional cell carcinoma [Recovered/Resolved]
  - Prostatitis [Recovering/Resolving]
  - Drug ineffective [Unknown]
